FAERS Safety Report 14123819 (Version 1)
Quarter: 2017Q4

REPORT INFORMATION
  Report Type: Spontaneous
  Country: HU (occurrence: HU)
  Receive Date: 20171025
  Receipt Date: 20171025
  Transmission Date: 20180321
  Serious: Yes (Other)
  Sender: FDA-Public Use
  Company Number: PHHY2017HU154132

PATIENT
  Age: 44 Year
  Sex: Female

DRUGS (2)
  1. SIRDALUD [Suspect]
     Active Substance: TIZANIDINE
     Indication: BACK PAIN
     Dosage: 2 MG, QD
     Route: 048
     Dates: start: 20170928, end: 20171003
  2. AFLAMIN (INDOMETHACIN) [Suspect]
     Active Substance: INDOMETHACIN
     Indication: BACK PAIN
     Dosage: 100 MG, BID
     Route: 048
     Dates: start: 20170928, end: 20171003

REACTIONS (9)
  - Faeces pale [Recovered/Resolved]
  - Fatigue [Recovered/Resolved]
  - Chromaturia [Recovered/Resolved]
  - Somnolence [Recovered/Resolved]
  - Haemoptysis [Recovered/Resolved]
  - Eructation [Recovered/Resolved]
  - Decreased appetite [Recovered/Resolved]
  - Depression [Recovered/Resolved]
  - Abdominal pain upper [Recovered/Resolved]

NARRATIVE: CASE EVENT DATE: 20170929
